FAERS Safety Report 17223575 (Version 5)
Quarter: 2020Q1

REPORT INFORMATION
  Report Type: Spontaneous
  Country: BR (occurrence: BR)
  Receive Date: 20200102
  Receipt Date: 20200331
  Transmission Date: 20200409
  Serious: Yes (Hospitalization, Other)
  Sender: FDA-Public Use
  Company Number: BR-GLAXOSMITHKLINE-BR2019AMR237608

PATIENT
  Sex: Female

DRUGS (1)
  1. SERETIDE [Suspect]
     Active Substance: FLUTICASONE PROPIONATE\SALMETEROL XINAFOATE
     Indication: ASTHMA
     Dosage: 2 PUFF(S), BID
     Route: 055
     Dates: start: 201910

REACTIONS (11)
  - Asthmatic crisis [Recovered/Resolved]
  - Bedridden [Unknown]
  - Neck injury [Unknown]
  - Pain [Unknown]
  - Renal disorder [Unknown]
  - Pleural effusion [Unknown]
  - Fall [Unknown]
  - Product complaint [Unknown]
  - Pneumonia [Unknown]
  - Chest injury [Unknown]
  - Incorrect dose administered [Unknown]

NARRATIVE: CASE EVENT DATE: 201910
